FAERS Safety Report 6135520-5 (Version None)
Quarter: 2009Q1

REPORT INFORMATION
  Report Type: 
  Country: None (occurrence: None)
  Receive Date: 20090217
  Receipt Date: 20080213
  Transmission Date: 20090719
  Serious: No
  Sender: FDA-Public Use
  Company Number: AEUSA200800036

PATIENT
  Age: 71 Year
  Sex: Female
  Weight: 83.4619 kg

DRUGS (5)
  1. PROLASTIN [Suspect]
     Indication: ALPHA-1 ANTI-TRYPSIN DEFICIENCY
     Dosage: 5040 MG;QW;IV
     Route: 042
     Dates: start: 20040101
  2. SODIUM CHLORIDE [Suspect]
     Dosage: 200 ML;1X;IV
     Route: 042
     Dates: start: 20080211
  3. CRESTOR /01588602/ [Concomitant]
  4. SPIRIVA [Concomitant]
  5. ADVAIR HFA [Concomitant]

REACTIONS (2)
  - INJECTION SITE PAIN [None]
  - PYREXIA [None]
